FAERS Safety Report 5281244-6 (Version None)
Quarter: 2007Q1

REPORT INFORMATION
  Report Type: 
  Country: None (occurrence: None)
  Receive Date: 20070326
  Receipt Date: 20070313
  Transmission Date: 20070707
  Serious: Yes (Hospitalization, Other)
  Sender: FDA-Public Use
  Company Number: 2007SP003945

PATIENT
  Age: 73 Year
  Sex: Male
  Weight: 80 kg

DRUGS (4)
  1. NOXAFIL [Suspect]
     Indication: MUCORMYCOSIS
     Dosage: 800 MG;QD;PO
     Route: 048
     Dates: start: 20070101
  2. LEVOTHYROX (CON.) [Concomitant]
  3. AMIODARON (CON.) [Concomitant]
  4. AMBISONE (CON.) [Concomitant]

REACTIONS (4)
  - FACE OEDEMA [None]
  - FLUID RETENTION [None]
  - RENAL FAILURE ACUTE [None]
  - WEIGHT INCREASED [None]
